FAERS Safety Report 4281939-7 (Version None)
Quarter: 2004Q1

REPORT INFORMATION
  Report Type: 
  Country: None (occurrence: None)
  Receive Date: 20040128
  Receipt Date: 20040131
  Transmission Date: 20041129
  Serious: Yes (Life-Threatening, Hospitalization)
  Sender: FDA-Public Use
  Company Number: ZANA001122

PATIENT
  Age: 41 Year
  Sex: Female

DRUGS (5)
  1. ZANAFLEX [Suspect]
     Indication: MUSCLE SPASTICITY
     Dosage: 16 MG/DAY ORAL
     Route: 048
     Dates: start: 20030101, end: 20031205
  2. RAMIPRIL [Concomitant]
  3. METOPROLOL SUCCINATE [Concomitant]
  4. FUCIDIN (FUSIDIC ACID) [Concomitant]
  5. CLINDAMYCIN (CLINDAMYCIN) [Concomitant]

REACTIONS (5)
  - APNOEA [None]
  - BLOOD PRESSURE INCREASED [None]
  - BRADYCARDIA [None]
  - COMA [None]
  - PALLOR [None]
